FAERS Safety Report 17692833 (Version 1)
Quarter: 2020Q2

REPORT INFORMATION
  Report Type: Spontaneous
  Country: US (occurrence: US)
  Receive Date: 20200420
  Receipt Date: 20200420
  Transmission Date: 20200714
  Serious: Yes (Death)
  Sender: FDA-Public Use
  Company Number: None

PATIENT
  Age: 70 Year
  Sex: Female

DRUGS (27)
  1. HYDROMORPHONE [Concomitant]
     Active Substance: HYDROMORPHONE
  2. TYLENOL RECT SUPP [Concomitant]
  3. CODEINE-GUAIFENESIN [Concomitant]
     Active Substance: CODEINE PHOSPHATE\GUAIFENESIN
  4. MIDODRINE [Concomitant]
     Active Substance: MIDODRINE
  5. BENZONATATE. [Concomitant]
     Active Substance: BENZONATATE
  6. HYDROCORTISONE. [Concomitant]
     Active Substance: HYDROCORTISONE
  7. METOLAZONE. [Concomitant]
     Active Substance: METOLAZONE
  8. BISACODYL RECT SUPP [Concomitant]
  9. ALBUTEROL HFA{ ALVESCO HFA [Concomitant]
  10. PREDNISONE. [Concomitant]
     Active Substance: PREDNISONE
  11. FENTANYL TRANSDERMAL SYSTEM [Concomitant]
     Active Substance: FENTANYL
  12. TEMAZEPAM. [Concomitant]
     Active Substance: TEMAZEPAM
  13. ALLOPURINOL. [Concomitant]
     Active Substance: ALLOPURINOL
  14. FLONASE [Concomitant]
     Active Substance: FLUTICASONE PROPIONATE
  15. ATROPINE OPHT DROP [Concomitant]
  16. LASIX [Concomitant]
     Active Substance: FUROSEMIDE
  17. PROCHLORPERAZINE. [Concomitant]
     Active Substance: PROCHLORPERAZINE
  18. MIRTAZAPINE. [Concomitant]
     Active Substance: MIRTAZAPINE
  19. MONTELUKAST [Concomitant]
     Active Substance: MONTELUKAST SODIUM
  20. OPSUMIT [Suspect]
     Active Substance: MACITENTAN
     Indication: PULMONARY ARTERIAL HYPERTENSION
     Route: 048
     Dates: start: 201901, end: 202003
  21. SILDENAFIL. [Concomitant]
     Active Substance: SILDENAFIL
  22. GLIPIZIDE. [Concomitant]
     Active Substance: GLIPIZIDE
  23. COLACE [Concomitant]
     Active Substance: DOCUSATE SODIUM
  24. TYLENOL ORAL TAB [Concomitant]
  25. BISACODYL ORAL TAB [Concomitant]
  26. INTRANASAL OXYGEN [Concomitant]
  27. SPIRIVA RESPIMAT [Concomitant]
     Active Substance: TIOTROPIUM BROMIDE

REACTIONS (1)
  - Death [None]

NARRATIVE: CASE EVENT DATE: 20200325
